FAERS Safety Report 8275790-0 (Version None)
Quarter: 2012Q2

REPORT INFORMATION
  Report Type: 
  Country: None (occurrence: None)
  Receive Date: 20120410
  Receipt Date: 20120410
  Transmission Date: 20120825
  Serious: No
  Sender: FDA-Public Use
  Company Number: None

PATIENT
  Age: 31 Year
  Sex: Male
  Weight: 104.5 kg

DRUGS (1)
  1. HYDROMORPHONE HCL [Suspect]
     Indication: PAIN
     Dosage: 1 MG ONCE IM
     Route: 030
     Dates: start: 20111112, end: 20111112

REACTIONS (5)
  - RASH MACULAR [None]
  - ANGIOEDEMA [None]
  - HYPERHIDROSIS [None]
  - NAUSEA [None]
  - DIZZINESS [None]
